FAERS Safety Report 17987593 (Version 1)
Quarter: 2020Q3

REPORT INFORMATION
  Report Type: Spontaneous
  Country: US (occurrence: US)
  Receive Date: 20200706
  Receipt Date: 20200706
  Transmission Date: 20201103
  Serious: No
  Sender: FDA-Public Use
  Company Number: None

PATIENT
  Sex: Female

DRUGS (1)
  1. ENBREL [Suspect]
     Active Substance: ETANERCEPT
     Indication: JUVENILE IDIOPATHIC ARTHRITIS
     Dosage: 50MG EVERY 7 DAYS ULCER THE SKIN
     Route: 059
     Dates: start: 20190809

REACTIONS (3)
  - Device difficult to use [None]
  - Drug ineffective [None]
  - Product use complaint [None]
